FAERS Safety Report 8157326-8 (Version None)
Quarter: 2012Q1

REPORT INFORMATION
  Report Type: 
  Country: None (occurrence: None)
  Receive Date: 20120222
  Receipt Date: 20120216
  Transmission Date: 20120608
  Serious: Yes (Life-Threatening, Hospitalization)
  Sender: FDA-Public Use
  Company Number: PL-NOVOPROD-343565

PATIENT
  Age: 66 Year
  Sex: Male
  Weight: 95 kg

DRUGS (10)
  1. TIOTROPIUM [Concomitant]
     Indication: CHRONIC OBSTRUCTIVE PULMONARY DISEASE
     Dosage: 18 A?G, QD
     Dates: start: 20111220
  2. LIRAGLUTIDE FLEXPEN [Suspect]
     Indication: TYPE 2 DIABETES MELLITUS
     Dosage: 0.6 MG, QD
     Route: 058
     Dates: start: 20110308, end: 20110411
  3. LIRAGLUTIDE FLEXPEN [Suspect]
     Dosage: 1.2 MG, QD
     Route: 058
     Dates: start: 20110412, end: 20110418
  4. FLUTICASONE PROPIONATE [Concomitant]
     Indication: CHRONIC OBSTRUCTIVE PULMONARY DISEASE
     Dosage: 1000 A?G, QID
     Dates: start: 20111220, end: 20120108
  5. ONDANSETRON [Concomitant]
     Indication: PROPHYLAXIS
     Dosage: 16 MG, QD
     Dates: start: 20120111
  6. LIRAGLUTIDE FLEXPEN [Suspect]
     Dosage: 1.8 MG, QD
     Route: 058
     Dates: start: 20110419
  7. FORMOTEROL FUMARATE [Concomitant]
     Indication: CHRONIC OBSTRUCTIVE PULMONARY DISEASE
     Dosage: 24 A?G, QD
     Dates: start: 20111220
  8. THEOPHYLLINE [Concomitant]
     Indication: CHRONIC OBSTRUCTIVE PULMONARY DISEASE
     Dosage: 300 MG, QD
     Dates: start: 20111220
  9. DICLOFENAC SODIUM [Concomitant]
     Indication: LUNG ADENOCARCINOMA
     Dosage: 75 MG, QD
     Dates: start: 20111220
  10. BUDESONIDE [Concomitant]
     Indication: CHRONIC OBSTRUCTIVE PULMONARY DISEASE
     Dosage: 800 A?G, QD
     Dates: start: 20120109

REACTIONS (1)
  - LUNG ADENOCARCINOMA [None]
